FAERS Safety Report 4707113-5 (Version None)
Quarter: 2005Q3

REPORT INFORMATION
  Report Type: 
  Country: None (occurrence: None)
  Receive Date: 20050706
  Receipt Date: 20050704
  Transmission Date: 20060218
  Serious: Yes (Other)
  Sender: FDA-Public Use
  Company Number: PHNR2005AU01033

PATIENT
  Age: 15 Year
  Sex: Male

DRUGS (2)
  1. RITALIN [Suspect]
     Route: 048
  2. DEXAMFETAMINE SULFATE [Suspect]

REACTIONS (1)
  - RETINAL PIGMENTATION [None]
